FAERS Safety Report 23934074 (Version 2)
Quarter: 2024Q2

REPORT INFORMATION
  Report Type: Spontaneous
  Country: CH (occurrence: CH)
  Receive Date: 20240603
  Receipt Date: 20240614
  Transmission Date: 20240716
  Serious: Yes (Hospitalization)
  Sender: FDA-Public Use
  Company Number: CH-TEVA-VS-3202822

PATIENT
  Age: 53 Year
  Sex: Male

DRUGS (3)
  1. DIPYRONE [Suspect]
     Active Substance: DIPYRONE
     Indication: Antiinflammatory therapy
     Route: 065
  2. IBUPROFEN [Suspect]
     Active Substance: IBUPROFEN
     Indication: Antiinflammatory therapy
     Route: 065
  3. AMOXICILLIN\CLAVULANIC ACID [Suspect]
     Active Substance: AMOXICILLIN\CLAVULANIC ACID
     Indication: Bursitis
     Route: 065

REACTIONS (7)
  - Pyrexia [Recovering/Resolving]
  - Hilar lymphadenopathy [Recovering/Resolving]
  - Lymphadenopathy mediastinal [Recovering/Resolving]
  - Nephropathy [Recovering/Resolving]
  - Splenomegaly [Recovering/Resolving]
  - Liver disorder [Recovering/Resolving]
  - Respiratory distress [Recovering/Resolving]
